FAERS Safety Report 26012538 (Version 3)
Quarter: 2025Q4

REPORT INFORMATION
  Report Type: Report from Study
  Country: US (occurrence: US)
  Receive Date: 20251107
  Receipt Date: 20251203
  Transmission Date: 20260118
  Serious: Yes (Other)
  Sender: ABBVIE
  Company Number: US-ABBVIE-6525615

PATIENT
  Age: 84 Year
  Sex: Female

DRUGS (2)
  1. IMBRUVICA [Suspect]
     Active Substance: IBRUTINIB
     Indication: Product used for unknown indication
     Dosage: MISSED 1 DAY DOSE
     Route: 048
     Dates: end: 20251022
  2. IMBRUVICA [Suspect]
     Active Substance: IBRUTINIB
     Indication: Product used for unknown indication
     Dosage: STOP DATE: 2025 TOOK 18 DOSE
     Route: 048
     Dates: start: 20251024

REACTIONS (6)
  - Spinal operation [Unknown]
  - Dyspnoea [Unknown]
  - Diarrhoea [Unknown]
  - Headache [Unknown]
  - Joint swelling [Unknown]
  - Peripheral swelling [Unknown]

NARRATIVE: CASE EVENT DATE: 20251023
